FAERS Safety Report 6838536-6 (Version None)
Quarter: 2010Q3

REPORT INFORMATION
  Report Type: 
  Country: None (occurrence: None)
  Receive Date: 20100713
  Receipt Date: 20070615
  Transmission Date: 20110219
  Serious: No
  Sender: FDA-Public Use
  Company Number: US-PFIZER INC-2007050733

PATIENT
  Sex: Female
  Weight: 54.545 kg

DRUGS (3)
  1. CHANTIX [Suspect]
     Indication: SMOKING CESSATION THERAPY
     Dates: start: 20070301, end: 20070609
  2. PROVIGIL [Concomitant]
  3. CELEXA [Concomitant]

REACTIONS (3)
  - ABNORMAL DREAMS [None]
  - HEADACHE [None]
  - LETHARGY [None]
